FAERS Safety Report 7821405-2 (Version None)
Quarter: 2011Q4

REPORT INFORMATION
  Report Type: 
  Country: None (occurrence: None)
  Receive Date: 20111018
  Receipt Date: 20111006
  Transmission Date: 20120403
  Serious: Yes (Other)
  Sender: FDA-Public Use
  Company Number: FR-ACTELION-A-CH2006-13550

PATIENT
  Sex: Female
  Weight: 67 kg

DRUGS (1)
  1. ZAVESCA [Suspect]
     Indication: GAUCHER'S DISEASE
     Dosage: 100 MG, BID
     Route: 048
     Dates: start: 20060330, end: 20060407

REACTIONS (9)
  - AFFECTIVE DISORDER [None]
  - NAUSEA [None]
  - GASTROOESOPHAGEAL REFLUX DISEASE [None]
  - DRUG INTOLERANCE [None]
  - ANXIETY [None]
  - DELIRIUM [None]
  - LOSS OF CONSCIOUSNESS [None]
  - DEPRESSION [None]
  - DIARRHOEA [None]
